FAERS Safety Report 10260215 (Version 1)
Quarter: 2014Q2

REPORT INFORMATION
  Report Type: Spontaneous
  Country: US (occurrence: US)
  Receive Date: 20140625
  Receipt Date: 20140625
  Transmission Date: 20141212
  Serious: No
  Sender: FDA-Public Use
  Company Number: US-SA-2014SA031605

PATIENT
  Sex: Female

DRUGS (10)
  1. AUBAGIO [Suspect]
     Indication: MULTIPLE SCLEROSIS
     Route: 048
     Dates: start: 20131009
  2. FISH OIL [Concomitant]
  3. CALCIUM [Concomitant]
  4. NEXIUM [Concomitant]
  5. CELEBREX [Concomitant]
  6. AMPYRA [Concomitant]
  7. GABAPENTIN [Concomitant]
  8. PREDNISONE [Concomitant]
  9. ZETIA [Concomitant]
  10. ZOCOR [Concomitant]

REACTIONS (1)
  - Alopecia [Unknown]
